FAERS Safety Report 9523713 (Version 4)
Quarter: 2014Q3

REPORT INFORMATION
  Report Type: Report from Study
  Country: JP (occurrence: JP)
  Receive Date: 20130914
  Receipt Date: 20140715
  Transmission Date: 20150326
  Serious: Yes (Life-Threatening, Hospitalization)
  Sender: FDA-Public Use
  Company Number: JP-ROCHE-1275661

PATIENT
  Age: 85 Year
  Sex: Female
  Weight: 44 kg

DRUGS (5)
  1. ALTEPLASE [Suspect]
     Active Substance: ALTEPLASE
     Indication: THROMBOTIC CEREBRAL INFARCTION
     Route: 042
     Dates: start: 20130720, end: 20130720
  2. EDARAVONE [Suspect]
     Active Substance: EDARAVONE
     Indication: THROMBOTIC CEREBRAL INFARCTION
     Route: 041
     Dates: start: 20130720, end: 20130802
  3. SLONNON [Concomitant]
     Active Substance: ARGATROBAN
     Route: 065
     Dates: start: 20130722, end: 20130728
  4. ASPIRIN. [Concomitant]
     Active Substance: ASPIRIN
     Route: 048
     Dates: start: 20130801
  5. CLOPIDOGREL SULFATE [Concomitant]
     Active Substance: CLOPIDOGREL BISULFATE
     Route: 065
     Dates: start: 20130721

REACTIONS (1)
  - Myocardial infarction [Recovering/Resolving]

NARRATIVE: CASE EVENT DATE: 20130721
